FAERS Safety Report 15947131 (Version 1)
Quarter: 2019Q1

REPORT INFORMATION
  Report Type: Spontaneous
  Country: JP (occurrence: JP)
  Receive Date: 20190211
  Receipt Date: 20190211
  Transmission Date: 20190417
  Serious: Yes (Hospitalization)
  Sender: FDA-Public Use
  Company Number: JP-BAYER-2018-211333

PATIENT
  Age: 85 Year
  Sex: Male

DRUGS (14)
  1. CARDENALIN [Concomitant]
     Active Substance: DOXAZOSIN MESYLATE
     Dosage: DAILY DOSE .5 MG
     Dates: start: 20120713
  2. OLMESARTAN OD [Concomitant]
     Dosage: 20 MG, QD
     Dates: start: 20181203
  3. ATARAX-P [HYDROXYZINE EMBONATE] [Concomitant]
     Dosage: 25 MG, QD
     Dates: start: 20181203
  4. DIOVAN [Concomitant]
     Active Substance: VALSARTAN
     Dosage: DAILY DOSE 20 MG
     Dates: start: 20120713
  5. RUPAFIN [Concomitant]
     Active Substance: RUPATADINE FUMARATE
     Dosage: 20 MG, QD
     Dates: start: 20181203
  6. MYSLEE [Concomitant]
     Active Substance: ZOLPIDEM TARTRATE
  7. NIFEDIPINE. [Concomitant]
     Active Substance: NIFEDIPINE
     Dosage: 40 MG, QD
     Dates: start: 20181203
  8. AMLODIN [Concomitant]
     Active Substance: AMLODIPINE BESYLATE
     Dosage: DAILY DOSE 10 MG
     Dates: start: 20120713
  9. MYALONE [CLOBETASOL PROPIONATE] [Concomitant]
     Dosage: UNK
     Dates: start: 20181203
  10. BAYASPIRIN 100 MG [Suspect]
     Active Substance: ASPIRIN
     Indication: CEREBROVASCULAR ACCIDENT PROPHYLAXIS
     Dosage: 100 MG, QD
     Route: 048
     Dates: start: 20120713
  11. BAYASPIRIN 100 MG [Suspect]
     Active Substance: ASPIRIN
     Indication: HYPERTENSION
  12. ZOLPIDEM TARTRATE. [Concomitant]
     Active Substance: ZOLPIDEM TARTRATE
     Dosage: 5 MG, QD
     Dates: start: 20181203
  13. PREDNISOLONE. [Concomitant]
     Active Substance: PREDNISOLONE
     Dosage: 10 MG, BID
     Dates: start: 20181203
  14. FAMOTIDINE. [Concomitant]
     Active Substance: FAMOTIDINE
     Dosage: 20 MG, BID
     Dates: start: 20181203

REACTIONS (2)
  - Prurigo [Recovering/Resolving]
  - Eosinophil count increased [None]

NARRATIVE: CASE EVENT DATE: 201811
